FAERS Safety Report 17884182 (Version 1)
Quarter: 2020Q2

REPORT INFORMATION
  Report Type: Spontaneous
  Country: US (occurrence: US)
  Receive Date: 20200611
  Receipt Date: 20200611
  Transmission Date: 20200714
  Serious: Yes (Other)
  Sender: FDA-Public Use
  Company Number: NVSC2020US161790

PATIENT
  Sex: Female

DRUGS (2)
  1. SPRYCEL [Suspect]
     Active Substance: DASATINIB
     Indication: CHRONIC MYELOID LEUKAEMIA
     Route: 065
  2. GLEEVEC [Suspect]
     Active Substance: IMATINIB MESYLATE
     Indication: CHRONIC MYELOID LEUKAEMIA
     Route: 065

REACTIONS (21)
  - Nausea [Unknown]
  - Aphasia [Unknown]
  - Chest pain [Unknown]
  - Bone pain [Unknown]
  - Fatigue [Unknown]
  - Ill-defined disorder [Unknown]
  - Arthralgia [Unknown]
  - Dysphemia [Unknown]
  - Weight decreased [Unknown]
  - Dry mouth [Unknown]
  - Decreased appetite [Unknown]
  - Disturbance in attention [Unknown]
  - Seizure [Unknown]
  - Diarrhoea [Unknown]
  - Movement disorder [Unknown]
  - Coordination abnormal [Unknown]
  - Vomiting [Unknown]
  - Thirst [Unknown]
  - Anxiety [Unknown]
  - Feeding disorder [Unknown]
  - Headache [Unknown]
